FAERS Safety Report 24755545 (Version 1)
Quarter: 2024Q4

REPORT INFORMATION
  Report Type: Spontaneous
  Country: CA (occurrence: CA)
  Receive Date: 20241219
  Receipt Date: 20241219
  Transmission Date: 20250115
  Serious: Yes (Hospitalization, Other)
  Sender: HLS THERAPEUTICS
  Company Number: CA-HLS-202403139

PATIENT
  Age: 49 Year
  Sex: Female

DRUGS (29)
  1. ARIPIPRAZOLE [Suspect]
     Active Substance: ARIPIPRAZOLE
     Indication: Schizoaffective disorder
     Dosage: NOT SPECIFIED DOSAGE FORM
     Route: 065
  2. ARIPIPRAZOLE [Suspect]
     Active Substance: ARIPIPRAZOLE
     Indication: Williams syndrome
     Dosage: NOT SPECIFIED DOSAGE FORM
     Route: 065
  3. CLOZAPINE [Suspect]
     Active Substance: CLOZAPINE
     Indication: Williams syndrome
     Dosage: 400.0 MILLIGRAM 1 EVERY 1 DAYS
     Route: 065
  4. CLOZAPINE [Suspect]
     Active Substance: CLOZAPINE
     Indication: Antipsychotic therapy
     Dosage: 400.0 MILLIGRAM 1 EVERY 1 DAYS
     Route: 065
  5. CLOZAPINE [Suspect]
     Active Substance: CLOZAPINE
     Indication: Williams syndrome
     Dosage: TABLETS DOSAGE FORM
     Route: 065
  6. CLOZAPINE [Suspect]
     Active Substance: CLOZAPINE
     Indication: Antipsychotic therapy
     Dosage: TABLETS DOSAGE FORM
     Route: 065
  7. LORAZEPAM [Suspect]
     Active Substance: LORAZEPAM
     Indication: Generalised anxiety disorder
     Dosage: 1.0 MILLIGRAM 2 EVERY 1 DAYS
     Route: 065
  8. LORAZEPAM [Suspect]
     Active Substance: LORAZEPAM
     Indication: Williams syndrome
     Dosage: 1.0 MILLIGRAM 2 EVERY 1 DAYS
     Route: 065
  9. LORAZEPAM [Suspect]
     Active Substance: LORAZEPAM
     Indication: Major depression
     Dosage: 1.0 MILLIGRAM 2 EVERY 1 DAYS
     Route: 065
  10. LORAZEPAM [Suspect]
     Active Substance: LORAZEPAM
     Indication: Generalised anxiety disorder
     Dosage: NOT SPECIFIED DOSAGE FORM
     Route: 065
  11. LORAZEPAM [Suspect]
     Active Substance: LORAZEPAM
     Indication: Williams syndrome
     Dosage: NOT SPECIFIED DOSAGE FORM
     Route: 065
  12. LORAZEPAM [Suspect]
     Active Substance: LORAZEPAM
     Indication: Major depression
     Dosage: NOT SPECIFIED DOSAGE FORM
     Route: 065
  13. OLANZAPINE [Suspect]
     Active Substance: OLANZAPINE
     Indication: Williams syndrome
     Dosage: 20.0 MILLIGRAM 1 EVERY 1 DAYS
     Route: 065
  14. OLANZAPINE [Suspect]
     Active Substance: OLANZAPINE
     Indication: Antipsychotic therapy
     Dosage: 20.0 MILLIGRAM 1 EVERY 1 DAYS
     Route: 065
  15. OLANZAPINE [Suspect]
     Active Substance: OLANZAPINE
     Indication: Williams syndrome
     Dosage: NOT SPECIFIED DOSAGE FORM
     Route: 065
  16. OLANZAPINE [Suspect]
     Active Substance: OLANZAPINE
     Indication: Antipsychotic therapy
     Dosage: NOT SPECIFIED DOSAGE FORM
     Route: 065
  17. PALIPERIDONE [Suspect]
     Active Substance: PALIPERIDONE
     Indication: Schizoaffective disorder
     Route: 065
  18. PALIPERIDONE [Suspect]
     Active Substance: PALIPERIDONE
     Indication: Williams syndrome
     Route: 065
  19. QUETIAPINE [Suspect]
     Active Substance: QUETIAPINE
     Indication: Williams syndrome
     Dosage: TABLETS DOSAGE FORM
     Route: 065
  20. SERTRALINE [Suspect]
     Active Substance: SERTRALINE HYDROCHLORIDE
     Indication: Generalised anxiety disorder
     Dosage: 1 EVERY 1 DAYS?AMOUNT: 175 MILLIGRAM?CAPSULES DOSAGE FORM
     Route: 065
  21. SERTRALINE [Suspect]
     Active Substance: SERTRALINE HYDROCHLORIDE
     Indication: Williams syndrome
     Dosage: 1 EVERY 1 DAYS?AMOUNT: 175 MILLIGRAM?CAPSULES DOSAGE FORM
     Route: 065
  22. SERTRALINE [Suspect]
     Active Substance: SERTRALINE HYDROCHLORIDE
     Indication: Major depression
     Dosage: 1 EVERY 1 DAYS?AMOUNT: 175 MILLIGRAM?CAPSULES DOSAGE FORM
     Route: 065
  23. SERTRALINE [Suspect]
     Active Substance: SERTRALINE HYDROCHLORIDE
     Indication: Generalised anxiety disorder
     Dosage: 200.0 MILLIGRAM 1 EVERY 1 DAYS?CAPSULES DOSAGE FORM
     Route: 065
  24. SERTRALINE [Suspect]
     Active Substance: SERTRALINE HYDROCHLORIDE
     Indication: Williams syndrome
     Dosage: 200.0 MILLIGRAM 1 EVERY 1 DAYS?CAPSULES DOSAGE FORM
     Route: 065
  25. SERTRALINE [Suspect]
     Active Substance: SERTRALINE HYDROCHLORIDE
     Indication: Major depression
     Dosage: 200.0 MILLIGRAM 1 EVERY 1 DAYS?CAPSULES DOSAGE FORM
     Route: 065
  26. EMPAGLIFLOZIN [Concomitant]
     Active Substance: EMPAGLIFLOZIN
     Indication: Type 2 diabetes mellitus
     Dosage: TABLETS DOSAGE FORM
     Route: 065
  27. LINAGLIPTIN [Concomitant]
     Active Substance: LINAGLIPTIN
     Indication: Type 2 diabetes mellitus
     Route: 065
  28. METFORMIN [Concomitant]
     Active Substance: METFORMIN HYDROCHLORIDE
     Indication: Type 2 diabetes mellitus
     Route: 065
  29. QUETIAPINE FUMARATE [Suspect]
     Active Substance: QUETIAPINE FUMARATE
     Indication: Schizoaffective disorder
     Dosage: 1 EVERY 1 DAYS?AMOUNT: 400 MILLIGRAM
     Route: 065

REACTIONS (3)
  - Drug ineffective [Recovered/Resolved]
  - Movement disorder [Recovered/Resolved]
  - Therapeutic product ineffective [Recovered/Resolved]
